FAERS Safety Report 10441210 (Version 1)
Quarter: 2014Q3

REPORT INFORMATION
  Report Type: Spontaneous
  Country: US (occurrence: None)
  Receive Date: 20140908
  Receipt Date: 20140908
  Transmission Date: 20150326
  Serious: No
  Sender: FDA-Public Use
  Company Number: None

PATIENT
  Age: 71 Year
  Sex: Female
  Weight: 61.69 kg

DRUGS (11)
  1. CEFDINIR. [Concomitant]
     Active Substance: CEFDINIR
  2. IBUPROFEN. [Concomitant]
     Active Substance: IBUPROFEN
  3. RX COMPLETE EYE [Concomitant]
  4. VITAMIN D [Concomitant]
     Active Substance: CHOLECALCIFEROL
  5. NEO/POLYMYXIN/HC EAR SOLUTION GENERIC FOR CORTISPORIN OTIC SOLUTION [Suspect]
     Active Substance: HYDROCORTISONE\HYDROCORTISONE ACETATE\NEOMYCIN SULFATE\POLYMYXIN B SULFATE
     Indication: OTITIS EXTERNA
     Dosage: 3 DROPS IN RT. EAR 4T.A DAY
     Dates: start: 20140716, end: 20140727
  6. NEO/POLYMYXIN/HC EAR SOLUTION GENERIC FOR CORTISPORIN OTIC SOLUTION [Suspect]
     Active Substance: HYDROCORTISONE\HYDROCORTISONE ACETATE\NEOMYCIN SULFATE\POLYMYXIN B SULFATE
     Indication: LABYRINTHITIS
     Dosage: 3 DROPS IN RT. EAR 4T.A DAY
     Dates: start: 20140716, end: 20140727
  7. RESTASIS [Concomitant]
     Active Substance: CYCLOSPORINE
  8. XANAX [Concomitant]
     Active Substance: ALPRAZOLAM
  9. ASP 81MG [Concomitant]
  10. ESTRACE [Concomitant]
     Active Substance: ESTRADIOL
  11. CALCIUM [Concomitant]
     Active Substance: CALCIUM

REACTIONS (3)
  - Sleep disorder [None]
  - Dizziness [None]
  - Pain [None]

NARRATIVE: CASE EVENT DATE: 20140716
